FAERS Safety Report 24317712 (Version 1)
Quarter: 2024Q3

REPORT INFORMATION
  Report Type: Spontaneous
  Country: AT (occurrence: AT)
  Receive Date: 20240913
  Receipt Date: 20240913
  Transmission Date: 20241016
  Serious: Yes (Other)
  Sender: ROCHE
  Company Number: AT-ROCHE-10000074893

PATIENT
  Age: 95 Year
  Sex: Female

DRUGS (2)
  1. ACTEMRA [Suspect]
     Active Substance: TOCILIZUMAB
     Indication: Product used for unknown indication
     Route: 042
  2. METHYLPREDNISOLONE [Concomitant]
     Active Substance: METHYLPREDNISOLONE

REACTIONS (6)
  - Hypotension [Unknown]
  - Chills [Unknown]
  - Nausea [Unknown]
  - Hypertension [Unknown]
  - Immune effector cell-associated neurotoxicity syndrome [Unknown]
  - Pyrexia [Unknown]
